FAERS Safety Report 8186493-5 (Version None)
Quarter: 2012Q1

REPORT INFORMATION
  Report Type: 
  Country: None (occurrence: None)
  Receive Date: 20120306
  Receipt Date: 20120223
  Transmission Date: 20120608
  Serious: No
  Sender: FDA-Public Use
  Company Number: US-BAYER-2012-018418

PATIENT
  Sex: Female

DRUGS (1)
  1. MIRENA [Suspect]
     Indication: CONTRACEPTION
     Dosage: 20 MCG/24HR, CONT
     Route: 015
     Dates: start: 20100801

REACTIONS (8)
  - MENSTRUATION DELAYED [None]
  - BREAST TENDERNESS [None]
  - SKIN DISCOLOURATION [None]
  - PREGNANCY WITH CONTRACEPTIVE DEVICE [None]
  - MEDICAL DEVICE COMPLICATION [None]
  - BREAST SWELLING [None]
  - HEADACHE [None]
  - OEDEMA PERIPHERAL [None]
